FAERS Safety Report 4538716-9 (Version None)
Quarter: 2004Q4

REPORT INFORMATION
  Report Type: 
  Country: None (occurrence: None)
  Receive Date: 20041222
  Receipt Date: 20041203
  Transmission Date: 20050328
  Serious: Yes (Hospitalization)
  Sender: FDA-Public Use
  Company Number: US_980605223

PATIENT
  Age: 76 Year
  Sex: Male
  Weight: 93 kg

DRUGS (8)
  1. HUMALOG [Suspect]
     Dates: start: 19990101
  2. HUMULIN N [Suspect]
     Indication: DIABETES MELLITUS
     Dosage: 7 U/2 DAY
     Dates: start: 19910101
  3. HUMULIN R [Suspect]
     Indication: DIABETES MELLITUS
     Dosage: 8 U/2 DAY
     Dates: start: 19910101
  4. LOZOL [Concomitant]
  5. ZESTRIL [Concomitant]
  6. MULTIVITAMIN WITH MINERALS [Concomitant]
  7. COZAAR [Concomitant]
  8. LASIX [Concomitant]

REACTIONS (15)
  - ARRHYTHMIA [None]
  - ASTHENIA [None]
  - ATRIAL FIBRILLATION [None]
  - BLOOD GLUCOSE INCREASED [None]
  - BLOOD POTASSIUM INCREASED [None]
  - CHEST PAIN [None]
  - CONFUSIONAL STATE [None]
  - DISORIENTATION [None]
  - DISTURBANCE IN ATTENTION [None]
  - DRUG HYPERSENSITIVITY [None]
  - DYSPNOEA [None]
  - FEELING ABNORMAL [None]
  - INFECTION [None]
  - PHARMACEUTICAL PRODUCT COMPLAINT [None]
  - STRESS SYMPTOMS [None]
